FAERS Safety Report 9380026 (Version 2)
Quarter: 2013Q3

REPORT INFORMATION
  Report Type: Spontaneous
  Country: US (occurrence: US)
  Receive Date: 20130702
  Receipt Date: 20130826
  Transmission Date: 20140515
  Serious: Yes (Other)
  Sender: FDA-Public Use
  Company Number: US-PFIZER INC-2013193137

PATIENT
  Age: 32 Year
  Sex: Female
  Weight: 123 kg

DRUGS (2)
  1. MEDROXYPROGESTERONE ACETATE [Suspect]
     Indication: CONTRACEPTION
     Dosage: UNK, MONTHLY
     Dates: start: 2006, end: 2013
  2. CALCIUM [Suspect]
     Indication: DENTAL CARIES
     Dosage: UNK

REACTIONS (5)
  - Inappropriate schedule of drug administration [Recovered/Resolved]
  - Weight increased [Unknown]
  - Bone density decreased [Unknown]
  - Dental caries [Unknown]
  - Lactose intolerance [Unknown]
